FAERS Safety Report 9711312 (Version 2)
Quarter: 2013Q4

REPORT INFORMATION
  Report Type: Spontaneous
  Country: US (occurrence: US)
  Receive Date: 20131126
  Receipt Date: 20131126
  Transmission Date: 20140711
  Serious: Yes (Other)
  Sender: FDA-Public Use
  Company Number: US-BRISTOL-MYERS SQUIBB COMPANY-18749176

PATIENT
  Age: 59 Year
  Sex: Male

DRUGS (7)
  1. BYDUREON [Suspect]
     Indication: TYPE 2 DIABETES MELLITUS
     Dates: start: 20120918, end: 20121121
  2. LISINOPRIL [Concomitant]
  3. METFORMIN [Concomitant]
  4. ATORVASTATIN [Concomitant]
  5. SERTRALINE [Concomitant]
  6. METOPROLOL [Concomitant]
  7. LANTUS [Concomitant]

REACTIONS (3)
  - Renal failure acute [Recovered/Resolved]
  - Weight decreased [Unknown]
  - Dyspepsia [Unknown]
